FAERS Safety Report 15148299 (Version 1)
Quarter: 2018Q3

REPORT INFORMATION
  Report Type: Spontaneous
  Country: US (occurrence: US)
  Receive Date: 20180619
  Receipt Date: 20180619
  Transmission Date: 20181010
  Serious: Yes (Death)
  Sender: FDA-Public Use
  Company Number: None

PATIENT
  Age: 64 Year
  Sex: Male

DRUGS (1)
  1. HARVONI [Suspect]
     Active Substance: LEDIPASVIR\SOFOSBUVIR
     Indication: CHRONIC HEPATITIS C
     Dosage: TAKE ONE TABLET ORALLY DAILY
     Route: 048
     Dates: start: 20180226, end: 20180319

REACTIONS (1)
  - Bile duct cancer [None]

NARRATIVE: CASE EVENT DATE: 20180407
